FAERS Safety Report 5319989-1 (Version None)
Quarter: 2007Q2

REPORT INFORMATION
  Report Type: 
  Country: None (occurrence: None)
  Receive Date: 20070503
  Receipt Date: 20070417
  Transmission Date: 20071010
  Serious: Yes (Other)
  Sender: FDA-Public Use
  Company Number: DSA_61522_2007

PATIENT
  Age: 3 Year

DRUGS (1)
  1. DIASTAT /0017001/ [Suspect]
     Dosage: (RECTAL)
     Route: 054

REACTIONS (4)
  - DRUG DISPENSING ERROR [None]
  - INCORRECT DOSE ADMINISTERED [None]
  - MEDICATION ERROR [None]
  - RESPIRATORY DEPRESSION [None]
